FAERS Safety Report 7639864-7 (Version None)
Quarter: 2011Q3

REPORT INFORMATION
  Report Type: 
  Country: None (occurrence: None)
  Receive Date: 20110727
  Receipt Date: 20110719
  Transmission Date: 20111222
  Serious: Yes (Death, Other)
  Sender: FDA-Public Use
  Company Number: US-BAXTER-2011BH022124

PATIENT
  Sex: Male

DRUGS (1)
  1. DIANEAL [Suspect]
     Indication: PERITONEAL DIALYSIS
     Route: 033
     Dates: end: 20110624

REACTIONS (4)
  - ASTHENIA [None]
  - CARDIAC FAILURE [None]
  - ABASIA [None]
  - REFUSAL OF TREATMENT BY PATIENT [None]
